FAERS Safety Report 9397502 (Version 3)
Quarter: 2017Q4

REPORT INFORMATION
  Report Type: Spontaneous
  Country: US (occurrence: US)
  Receive Date: 20130712
  Receipt Date: 20171219
  Transmission Date: 20180321
  Serious: Yes (Hospitalization)
  Sender: FDA-Public Use
  Company Number: US-OTSUKA-US-2013-11317

PATIENT
  Age: 22 Year
  Sex: Male

DRUGS (2)
  1. ABILIFY MAINTENA [Suspect]
     Active Substance: ARIPIPRAZOLE
     Indication: SCHIZOPHRENIA
     Dosage: 400 MG MILLIGRAM(S), Q28 DAYS
     Route: 030
  2. ABILIFY [Suspect]
     Active Substance: ARIPIPRAZOLE
     Indication: SCHIZOPHRENIA
     Dosage: 20 MG, QD
     Route: 048
     Dates: start: 201306

REACTIONS (1)
  - Nephrolithiasis [Unknown]

NARRATIVE: CASE EVENT DATE: 201307
